FAERS Safety Report 8759304 (Version 1)
Quarter: 2012Q4

REPORT INFORMATION
  Report Type: Report from Study
  Country: AT (occurrence: AT)
  Receive Date: 20120829
  Receipt Date: 20120829
  Transmission Date: 20130627
  Serious: Yes (Hospitalization, Other)
  Sender: FDA-Public Use
  Company Number: AT-ABBOTT-12P-009-0970558-00

PATIENT
  Age: 42 Year
  Sex: Female

DRUGS (4)
  1. HUMIRA [Suspect]
     Indication: CROHN^S DISEASE
     Dosage: 160 mg (baseline)
     Route: 058
     Dates: start: 20080924, end: 20080924
  2. HUMIRA [Suspect]
     Dosage: 80 mg (week 2)
     Route: 058
  3. HUMIRA [Suspect]
     Route: 058
     Dates: end: 20081212
  4. CORTICOSTEROIDS [Concomitant]
     Indication: CROHN^S DISEASE

REACTIONS (2)
  - Histiocytic necrotising lymphadenitis [Unknown]
  - Peritoneal abscess [Unknown]
